FAERS Safety Report 11531556 (Version 2)
Quarter: 2015Q3

REPORT INFORMATION
  Report Type: Spontaneous
  Country: PH (occurrence: PH)
  Receive Date: 20150921
  Receipt Date: 20150923
  Transmission Date: 20151125
  Serious: Yes (Other)
  Sender: FDA-Public Use
  Company Number: PH-009507513-1509PHL010101

PATIENT
  Age: 85 Year
  Sex: Female

DRUGS (2)
  1. LAGAFLEX [Concomitant]
     Dosage: UNK
  2. JANUMET [Suspect]
     Active Substance: METFORMIN HYDROCHLORIDE\SITAGLIPTIN PHOSPHATE
     Indication: DIABETES MELLITUS
     Dosage: 50/850 MG, QD
     Route: 048

REACTIONS (4)
  - Loss of consciousness [Unknown]
  - Decreased appetite [Unknown]
  - Hip fracture [Unknown]
  - Stubbornness [Unknown]

NARRATIVE: CASE EVENT DATE: 20150917
